FAERS Safety Report 9742712 (Version 1)
Quarter: 2013Q4

REPORT INFORMATION
  Report Type: Spontaneous
  Country: US (occurrence: US)
  Receive Date: 20131210
  Receipt Date: 20131210
  Transmission Date: 20140711
  Serious: No
  Sender: FDA-Public Use
  Company Number: US-GILEAD-2009-0025756

PATIENT
  Sex: Male
  Weight: 90.72 kg

DRUGS (6)
  1. LETAIRIS [Suspect]
     Indication: PULMONARY ARTERIAL HYPERTENSION
     Route: 048
     Dates: start: 20090929
  2. ALDACTONE [Concomitant]
  3. LASIX [Concomitant]
  4. VICODIN [Concomitant]
  5. ZOFRAN [Concomitant]
  6. REMODULIN [Concomitant]

REACTIONS (1)
  - Unevaluable event [Unknown]
